FAERS Safety Report 6839061-9 (Version None)
Quarter: 2010Q3

REPORT INFORMATION
  Report Type: 
  Country: None (occurrence: None)
  Receive Date: 20100714
  Receipt Date: 20100706
  Transmission Date: 20110219
  Serious: Yes (Hospitalization)
  Sender: FDA-Public Use
  Company Number: US-BIOGENIDEC-2010BI011654

PATIENT
  Age: 64 Year
  Sex: Female

DRUGS (1)
  1. AVONEX [Suspect]
     Indication: MULTIPLE SCLEROSIS
     Route: 030
     Dates: start: 20011108

REACTIONS (7)
  - BREAST CANCER RECURRENT [None]
  - DECREASED IMMUNE RESPONSIVENESS [None]
  - IMPAIRED HEALING [None]
  - INFECTION [None]
  - MULTIPLE ALLERGIES [None]
  - OPEN WOUND [None]
  - RADIATION INJURY [None]
